FAERS Safety Report 18501861 (Version 12)
Quarter: 2021Q1

REPORT INFORMATION
  Report Type: Spontaneous
  Country: CZ (occurrence: CZ)
  Receive Date: 20201113
  Receipt Date: 20210309
  Transmission Date: 20210419
  Serious: Yes (Hospitalization, Other)
  Sender: FDA-Public Use
  Company Number: CZ-BRISTOL-MYERS SQUIBB COMPANY-BMS-2020-094630

PATIENT
  Age: 86 Year
  Sex: Female

DRUGS (36)
  1. PREDNISONE. [Interacting]
     Active Substance: PREDNISONE
     Dosage: 2?0?0
     Route: 065
  2. ELIQUIS [Suspect]
     Active Substance: APIXABAN
     Indication: PRODUCT USED FOR UNKNOWN INDICATION
     Dosage: 5 MILLIGRAM, BID
     Route: 048
  3. NOVALGIN [CAFFEINE;PARACETAMOL;PROPYPHENAZONE] [Interacting]
     Active Substance: ACETAMINOPHEN\CAFFEINE\PROPYPHENAZONE
     Indication: HYPERTENSION
     Dosage: 500 MILLIGRAM, BID
     Route: 065
  4. DUROGESIC [Interacting]
     Active Substance: FENTANYL
     Indication: POST HERPETIC NEURALGIA
  5. CALCICHEW D3 [Interacting]
     Active Substance: CALCIUM\CHOLECALCIFEROL
     Indication: CALCIUM DEFICIENCY
     Dosage: UNK UNK, QD
     Route: 065
  6. TEZEO [Interacting]
     Active Substance: TELMISARTAN
     Dosage: 1 DOSAGE FORM, QD
     Route: 065
  7. CARDILAN [NICOFURANOSE] [Interacting]
     Active Substance: NICOFURANOSE
     Indication: ENCEPHALOPATHY
     Dosage: UNK UNK, QD
     Route: 048
  8. HYPNOGEN [Suspect]
     Active Substance: ZOLPIDEM TARTRATE
     Indication: DRUG ABUSE
     Dosage: UNK
     Route: 065
  9. PREGABALIN. [Concomitant]
     Active Substance: PREGABALIN
     Indication: POST HERPETIC NEURALGIA
     Dosage: UNK
     Route: 065
  10. PANADOL [Interacting]
     Active Substance: ACETAMINOPHEN
     Indication: PAIN
     Dosage: 500 MILLIGRAM, 3 TO 4 TIMES PER DAY
     Route: 048
  11. PREDNISONE. [Interacting]
     Active Substance: PREDNISONE
     Dosage: UNK UNK, QD (1?0?0)
     Route: 065
  12. CONTROLOC [Interacting]
     Active Substance: PANTOPRAZOLE SODIUM
     Indication: NAUSEA
     Dosage: 20 MILLIGRAM, QD
     Route: 048
  13. EUTHYROX [Interacting]
     Active Substance: LEVOTHYROXINE SODIUM
     Indication: AUTOIMMUNE THYROIDITIS
     Dosage: 100 MICROGRAM, QD
     Route: 065
  14. STILNOX [Suspect]
     Active Substance: ZOLPIDEM TARTRATE
     Indication: DRUG ABUSE
     Dosage: OVERUSED
     Route: 065
  15. CORDARONE [Interacting]
     Active Substance: AMIODARONE HYDROCHLORIDE
     Indication: ATRIAL FIBRILLATION
     Dosage: 200 MILLIGRAM, QD
     Route: 048
  16. BETALOC [METOPROLOL TARTRATE] [Suspect]
     Active Substance: METOPROLOL TARTRATE
     Indication: PRODUCT USED FOR UNKNOWN INDICATION
     Dosage: 25 MILLIGRAM, QD
     Route: 065
  17. CARDILAN [MAGNESIUM ASPARTATE;POTASSIUM ASPARTATE] [Suspect]
     Active Substance: MAGNESIUM ASPARTATE\POTASSIUM ASPARTATE
     Indication: PRODUCT USED FOR UNKNOWN INDICATION
     Dosage: UNK
     Route: 065
  18. ROSUCARD [Interacting]
     Active Substance: ROSUVASTATIN CALCIUM
     Indication: PRODUCT USED FOR UNKNOWN INDICATION
     Dosage: 20 MILLIGRAM, QD
     Route: 048
  19. DUROGESIC [Interacting]
     Active Substance: FENTANYL
     Indication: PAIN
     Dosage: 25 MICROGRAM,Q72H
     Route: 062
     Dates: start: 2015
  20. NOVALGIN (METAMIZOLE SODIUM) [Interacting]
     Active Substance: METAMIZOLE SODIUM
     Indication: POST HERPETIC NEURALGIA
     Dosage: 500 MILLIGRAM, BID
     Route: 065
  21. TRAMADOL. [Suspect]
     Active Substance: TRAMADOL
     Indication: PRODUCT USED FOR UNKNOWN INDICATION
     Dosage: OVERUSED
     Route: 048
  22. IBALGIN [Suspect]
     Active Substance: IBUPROFEN
     Indication: PAIN
     Dosage: UNK
     Route: 065
  23. PREDNISON LECIVA [Suspect]
     Active Substance: PREDNISONE
     Indication: PRODUCT USED FOR UNKNOWN INDICATION
     Dosage: UNK
     Route: 065
  24. TEZEO HCT [Suspect]
     Active Substance: HYDROCHLOROTHIAZIDE\TELMISARTAN
     Indication: PRODUCT USED FOR UNKNOWN INDICATION
     Dosage: UNK
     Route: 065
  25. ORAMELLOX [Interacting]
     Active Substance: MELOXICAM
     Indication: PAIN
     Dosage: 15 MILLIGRAM, Q3WK
     Route: 048
     Dates: start: 2015
  26. BETALOC ZOK [Interacting]
     Active Substance: METOPROLOL SUCCINATE
     Indication: HYPERTENSION
     Dosage: 25 MILLIGRAM, QD
     Route: 048
  27. GUTTALAX [SODIUM PICOSULFATE] [Interacting]
     Active Substance: SODIUM PICOSULFATE
     Indication: CONSTIPATION
     Dosage: 10 TO 20 GTT IN THE EVENING
     Route: 065
  28. ACIDUM FOLICUM [Interacting]
     Active Substance: FOLIC ACID
     Indication: PRODUCT USED FOR UNKNOWN INDICATION
     Dosage: UNK, QWK
     Route: 065
  29. METHOTREXATE SODIUM. [Interacting]
     Active Substance: METHOTREXATE SODIUM
     Indication: RHEUMATOID ARTHRITIS
     Dosage: 10 MILLIGRAM, QWK
     Route: 048
     Dates: start: 2010
  30. PANADOL [Interacting]
     Active Substance: ACETAMINOPHEN
     Dosage: 1.5 DOSAGE FORM
     Route: 065
  31. AGEN [Interacting]
     Active Substance: AMLODIPINE BESYLATE
     Indication: HYPERTENSION
     Dosage: 5 MILLIGRAM, QD
     Route: 048
  32. PREDNISONE. [Interacting]
     Active Substance: PREDNISONE
     Indication: STEROID THERAPY
     Dosage: 5 MILLIGRAM, QD
     Route: 048
  33. CONDROSULF [Interacting]
     Active Substance: SODIUM CHONDROITIN SULFATE
     Indication: RHEUMATOID ARTHRITIS
     Dosage: 800 MILLIGRAM, QD
     Route: 048
  34. TEZEO [Interacting]
     Active Substance: TELMISARTAN
     Indication: HYPERTENSION
     Dosage: 80/12.5 MG , QD
     Route: 048
  35. OXAZEPAM. [Suspect]
     Active Substance: OXAZEPAM
     Indication: DRUG ABUSE
     Dosage: OVERUSED
     Route: 048
  36. GUTTALAX [BISACODYL] [Interacting]
     Active Substance: BISACODYL
     Indication: CONSTIPATION
     Dosage: 10?20 GTT IN THE EVENING
     Route: 065

REACTIONS (41)
  - Hypertension [Recovering/Resolving]
  - Oxygen saturation decreased [Recovering/Resolving]
  - Hyponatraemia [Recovering/Resolving]
  - Hypokalaemia [Recovering/Resolving]
  - Dehydration [Recovered/Resolved]
  - Discomfort [Recovered/Resolved]
  - Poor quality sleep [Recovered/Resolved]
  - Sleep disorder [Recovering/Resolving]
  - Dizziness [Recovered/Resolved]
  - Drug interaction [Recovered/Resolved]
  - Loss of personal independence in daily activities [Recovered/Resolved]
  - Immobile [Recovered/Resolved]
  - Foreign body [Recovered/Resolved]
  - Incorrect dose administered [Recovered/Resolved]
  - Vertigo [Recovering/Resolving]
  - Liver function test increased [Recovering/Resolving]
  - Bedridden [Recovered/Resolved]
  - Atrial fibrillation [Recovering/Resolving]
  - Apathy [Recovering/Resolving]
  - Medication error [Recovered/Resolved]
  - Confusional state [Recovered/Resolved]
  - Fracture [Recovered/Resolved]
  - Prescription drug used without a prescription [Unknown]
  - Mobility decreased [Recovered/Resolved]
  - Nausea [Recovering/Resolving]
  - Delirium [Recovering/Resolving]
  - Hypoacusis [Recovered/Resolved]
  - Condition aggravated [Recovered/Resolved]
  - Anxiety [Recovered/Resolved]
  - Head discomfort [Recovering/Resolving]
  - Listless [Recovering/Resolving]
  - Fall [Recovering/Resolving]
  - General physical health deterioration [Recovering/Resolving]
  - Restlessness [Recovered/Resolved]
  - Contusion [Recovered/Resolved]
  - Urinary retention [Recovering/Resolving]
  - Cognitive disorder [Recovered/Resolved]
  - Encephalopathy [Recovering/Resolving]
  - Pelvic fracture [Recovered/Resolved]
  - Affect lability [Recovered/Resolved]
  - Reduced facial expression [Recovered/Resolved]

NARRATIVE: CASE EVENT DATE: 2018
